FAERS Safety Report 7029440-1 (Version None)
Quarter: 2010Q3

REPORT INFORMATION
  Report Type: 
  Country: None (occurrence: None)
  Receive Date: 20100930
  Receipt Date: 20100920
  Transmission Date: 20110219
  Serious: Yes (Hospitalization, Other)
  Sender: FDA-Public Use
  Company Number: 704999

PATIENT
  Age: 28 Year
  Sex: Male

DRUGS (6)
  1. (FUROSEMIDE) [Suspect]
     Indication: CARDIAC FAILURE
     Dosage: 40 MG EVERY 8 HOURS ON DAYS 82 THROUGH 84 (UNKNOWN), INTRAVENOUS
     Route: 042
  2. SILVER SULFADIAZINE [Suspect]
     Indication: STEVENS-JOHNSON SYNDROME
     Dosage: TOPICAL
     Route: 061
  3. (METORPOLOL) [Concomitant]
  4. SPIRONOLACTONE [Concomitant]
  5. DIGOXIN [Concomitant]
  6. PANTOPRAZOLE [Concomitant]

REACTIONS (5)
  - ACINETOBACTER BACTERAEMIA [None]
  - CROSS SENSITIVITY REACTION [None]
  - INFECTION [None]
  - STEVENS-JOHNSON SYNDROME [None]
  - THROMBOSIS [None]
